FAERS Safety Report 6161416-9 (Version None)
Quarter: 2009Q2

REPORT INFORMATION
  Report Type: 
  Country: None (occurrence: None)
  Receive Date: 20090417
  Receipt Date: 20090417
  Transmission Date: 20091009
  Serious: Yes (Other)
  Sender: FDA-Public Use
  Company Number: None

PATIENT
  Age: 70 Year
  Sex: Female
  Weight: 66.2252 kg

DRUGS (4)
  1. KAPIDEX [Suspect]
     Indication: GASTRIC DISORDER
     Dosage: 60MG 1-A DAY
     Dates: start: 20090301, end: 20090310
  2. KAPIDEX [Suspect]
     Indication: HERNIA
     Dosage: 60MG 1-A DAY
     Dates: start: 20090301, end: 20090310
  3. PREVACID [Suspect]
     Indication: GASTRIC DISORDER
     Dosage: 30MG 1-A DAY
     Dates: start: 20090326
  4. PREVACID [Suspect]
     Indication: HERNIA
     Dosage: 30MG 1-A DAY
     Dates: start: 20090326

REACTIONS (4)
  - DIARRHOEA [None]
  - MORBID THOUGHTS [None]
  - NAUSEA [None]
  - VOMITING [None]
